FAERS Safety Report 20803937 (Version 1)
Quarter: 2022Q2

REPORT INFORMATION
  Report Type: Spontaneous
  Country: US (occurrence: None)
  Receive Date: 20220509
  Receipt Date: 20220509
  Transmission Date: 20220721
  Serious: Yes (Hospitalization)
  Sender: FDA-Public Use
  Company Number: US-ROCHE-3087908

PATIENT
  Sex: Male

DRUGS (2)
  1. ESBRIET [Suspect]
     Active Substance: PIRFENIDONE
     Indication: Idiopathic pulmonary fibrosis
     Route: 048
     Dates: start: 20210129
  2. MIDODRINE [Concomitant]
     Active Substance: MIDODRINE
     Route: 048

REACTIONS (2)
  - Loss of consciousness [Unknown]
  - Orthostatic hypertension [Unknown]
